FAERS Safety Report 17041598 (Version 2)
Quarter: 2019Q4

REPORT INFORMATION
  Report Type: Spontaneous
  Country: IT (occurrence: IT)
  Receive Date: 20191118
  Receipt Date: 20191120
  Transmission Date: 20200122
  Serious: Yes (Hospitalization)
  Sender: FDA-Public Use
  Company Number: IT-SUN PHARMACEUTICAL INDUSTRIES LTD-2019RR-227704

PATIENT
  Age: 84 Year
  Sex: Female

DRUGS (3)
  1. TAMSULOSIN [Suspect]
     Active Substance: TAMSULOSIN
     Indication: PRODUCT ADMINISTRATION ERROR
     Dosage: IN TOTAL
     Route: 048
     Dates: start: 20191024, end: 20191024
  2. LARGACTIL [CHLORPROMAZINE HYDROCHLORIDE] [Suspect]
     Active Substance: CHLORPROMAZINE HYDROCHLORIDE
     Indication: PRODUCT ADMINISTRATION ERROR
     Dosage: IN TOTAL
     Route: 048
     Dates: start: 20191024, end: 20191024
  3. AKINETON [Suspect]
     Active Substance: BIPERIDEN HYDROCHLORIDE
     Indication: PRODUCT ADMINISTRATION ERROR
     Dosage: IN TOTAL
     Route: 048
     Dates: start: 20191024, end: 20191024

REACTIONS (3)
  - Medication error [Recovering/Resolving]
  - Depressed level of consciousness [Recovering/Resolving]
  - Vertigo [Recovering/Resolving]

NARRATIVE: CASE EVENT DATE: 20191024
